FAERS Safety Report 4780005-1 (Version None)
Quarter: 2005Q3

REPORT INFORMATION
  Report Type: 
  Country: None (occurrence: None)
  Receive Date: 20050927
  Receipt Date: 20050831
  Transmission Date: 20060218
  Serious: Yes (Disabling)
  Sender: FDA-Public Use
  Company Number: BE-BRISTOL-MYERS SQUIBB COMPANY-13096623

PATIENT
  Age: 36 Year
  Sex: Male
  Weight: 83 kg

DRUGS (4)
  1. ATAZANAVIR [Suspect]
     Indication: HIV INFECTION
     Route: 048
     Dates: start: 20030627, end: 20050518
  2. RITONAVIR [Concomitant]
     Route: 048
     Dates: start: 20030627, end: 20050318
  3. LAMIVUDINE + ZIDOVUDINE [Concomitant]
     Route: 048
     Dates: start: 20030627, end: 20050318
  4. TENOFOVIR [Concomitant]
     Route: 048
     Dates: start: 20030627, end: 20050318

REACTIONS (2)
  - HEPATITIS TOXIC [None]
  - RHABDOMYOLYSIS [None]
